FAERS Safety Report 16333312 (Version 1)
Quarter: 2019Q2

REPORT INFORMATION
  Report Type: Spontaneous
  Country: US (occurrence: US)
  Receive Date: 20190520
  Receipt Date: 20190520
  Transmission Date: 20190711
  Serious: Yes (Other)
  Sender: FDA-Public Use
  Company Number: US-009507513-1905USA008521

PATIENT
  Age: 68 Year
  Sex: Female

DRUGS (1)
  1. KEYTRUDA [Suspect]
     Active Substance: PEMBROLIZUMAB
     Indication: LUNG ADENOCARCINOMA
     Dosage: ONE DOSE
     Dates: start: 20190305

REACTIONS (4)
  - Pulmonary embolism [Unknown]
  - Cerebral infarction [Unknown]
  - Product use in unapproved indication [Unknown]
  - Splenic infarction [Unknown]

NARRATIVE: CASE EVENT DATE: 20190305
